FAERS Safety Report 24856021 (Version 1)
Quarter: 2025Q1

REPORT INFORMATION
  Report Type: Spontaneous
  Country: US (occurrence: None)
  Receive Date: 20250116
  Receipt Date: 20250116
  Transmission Date: 20250409
  Serious: Yes (Hospitalization, Disabling)
  Sender: FDA-CTU
  Company Number: None

PATIENT
  Age: 87 Year
  Sex: Female
  Weight: 58.06 kg

DRUGS (9)
  1. REPATHA [Suspect]
     Active Substance: EVOLOCUMAB
     Indication: Hypercholesterolaemia
     Dosage: OTHER QUANTITY : 1 PREFILLED AUTOINJECTER;?FREQUENCY : EVERY OTHER WEEK;?
     Route: 030
     Dates: start: 20240425, end: 20240509
  2. ARMOUR THYROID [Concomitant]
     Active Substance: THYROID, PORCINE
  3. ASPIRIN [Concomitant]
     Active Substance: ASPIRIN
  4. FUROSEMIDE [Concomitant]
     Active Substance: FUROSEMIDE
  5. HUMALOG [Concomitant]
     Active Substance: INSULIN LISPRO
  6. METOPROLOL [Concomitant]
     Active Substance: METOPROLOL
  7. LIDOCAINE [Concomitant]
     Active Substance: LIDOCAINE
  8. VIT B12 (CYCOCOLBOLAMINE) [Concomitant]
  9. VITAMIN D NOS [Concomitant]
     Active Substance: CHOLECALCIFEROL\ERGOCALCIFEROL

REACTIONS (12)
  - Peripheral swelling [None]
  - Joint swelling [None]
  - Oedema peripheral [None]
  - Pulmonary oedema [None]
  - Dyspnoea [None]
  - Nausea [None]
  - Fatigue [None]
  - Haemoglobin decreased [None]
  - Serum ferritin decreased [None]
  - Peripheral vascular disorder [None]
  - Varicose vein [None]
  - Skin discolouration [None]

NARRATIVE: CASE EVENT DATE: 20240509
